FAERS Safety Report 4504020-8 (Version None)
Quarter: 2004Q4

REPORT INFORMATION
  Report Type: 
  Country: None (occurrence: None)
  Receive Date: 20041115
  Receipt Date: 20041101
  Transmission Date: 20050328
  Serious: Yes (Hospitalization, Other)
  Sender: FDA-Public Use
  Company Number: 2004087022

PATIENT
  Age: 72 Year
  Sex: Male
  Weight: 99.7913 kg

DRUGS (8)
  1. COOL MINT LISTERINE (MENTHOL, METHYL SALICYLATE, EUCALYPTOL, THYMOL) [Suspect]
     Indication: DENTAL CARE
     Dosage: A ^SWIG^ 2-3 TIMES PER DAY, ORAL TOPICAL
     Route: 048
  2. TUCKS PRE-MOISTENED PADS (WITHCH HAZEL) [Suspect]
     Indication: PRURITUS ANI
     Dosage: 3 PADS AS NEEDED, TOPICAL
     Route: 061
  3. ESOMEPRAZOLE (ESOMEPRAZOLE) [Concomitant]
  4. METOPROLOL TARTRATE [Concomitant]
  5. DILTIAZEM HYDROCHLORIDE [Concomitant]
  6. CODEINE PHOSPHATE AND ACETAMINOPHEN [Concomitant]
  7. TOCOPHEROL CONCENTRATE CAP [Concomitant]
  8. ASPIRIN [Concomitant]

REACTIONS (2)
  - BLADDER CANCER [None]
  - LUNG NEOPLASM MALIGNANT [None]
